FAERS Safety Report 7104884-8 (Version None)
Quarter: 2010Q4

REPORT INFORMATION
  Report Type: 
  Country: None (occurrence: None)
  Receive Date: 20101116
  Receipt Date: 20101111
  Transmission Date: 20110411
  Serious: Yes (Life-Threatening)
  Sender: FDA-Public Use
  Company Number: DE-BRISTOL-MYERS SQUIBB COMPANY-15273964

PATIENT
  Age: 72 Year
  Sex: Male
  Weight: 69 kg

DRUGS (3)
  1. CETUXIMAB [Suspect]
     Indication: GASTROOESOPHAGEAL CANCER
     Dosage: RECENT INF:26AUG10(11TH)
     Route: 042
     Dates: start: 20100608, end: 20100826
  2. CISPLATIN [Suspect]
     Indication: GASTROOESOPHAGEAL CANCER
     Dosage: RECENT INF:26AUG10 ON DAY 1 OF CYCLE INTERRUPTED ON 02SEP10(86DAYS) NO OF INF:4
     Route: 042
     Dates: start: 20100608, end: 20100826
  3. XELODA [Suspect]
     Indication: GASTROOESOPHAGEAL CANCER
     Dosage: RECENT DOSE:2SEP10 ON DAY 1:15 TABS INTERRUPTED ON 02SEP10(86DAYS)
     Route: 048
     Dates: start: 20100608, end: 20100902

REACTIONS (1)
  - MYOCARDIAL INFARCTION [None]
